FAERS Safety Report 4519981-0 (Version None)
Quarter: 2004Q4

REPORT INFORMATION
  Report Type: 
  Country: None (occurrence: None)
  Receive Date: 20041207
  Receipt Date: 20041129
  Transmission Date: 20050328
  Serious: Yes (Other)
  Sender: FDA-Public Use
  Company Number: JP-MERCK-0412USA00273

PATIENT
  Age: 62 Year
  Sex: Female

DRUGS (4)
  1. PEPCID [Suspect]
     Route: 048
     Dates: start: 20041125, end: 20041129
  2. LASIX [Suspect]
     Route: 048
     Dates: start: 20041116, end: 20041129
  3. PREDONINE [Concomitant]
     Route: 048
     Dates: start: 20041102, end: 20041116
  4. PREDONINE [Concomitant]
     Route: 048
     Dates: start: 20041116, end: 20041129

REACTIONS (1)
  - LIVER DISORDER [None]
